FAERS Safety Report 12686676 (Version 2)
Quarter: 2016Q3

REPORT INFORMATION
  Report Type: Spontaneous
  Country: JP (occurrence: JP)
  Receive Date: 20160825
  Receipt Date: 20160923
  Transmission Date: 20161109
  Serious: Yes (Hospitalization)
  Sender: FDA-Public Use
  Company Number: JP-ELI_LILLY_AND_COMPANY-JP201608011351

PATIENT
  Age: 66 Year
  Sex: Female
  Weight: 50 kg

DRUGS (5)
  1. CYMBALTA [Suspect]
     Active Substance: DULOXETINE HYDROCHLORIDE
     Indication: NEURALGIA
  2. CYMBALTA [Suspect]
     Active Substance: DULOXETINE HYDROCHLORIDE
     Indication: PAIN IN EXTREMITY
     Dosage: 40 MG, EACH MORNING
     Route: 048
     Dates: start: 20160714, end: 20160714
  3. MOHRUS [Concomitant]
     Active Substance: KETOPROFEN
     Dosage: 1 DF, QD
     Route: 062
     Dates: start: 20160627
  4. NEUROTROPIN                        /06251301/ [Concomitant]
     Active Substance: ORYCTOLAGUS CUNICULUS SKIN
     Indication: PAIN IN EXTREMITY
     Dosage: 2 DF, BID
     Route: 048
     Dates: start: 20160518
  5. NEUROTROPIN                        /06251301/ [Concomitant]
     Active Substance: ORYCTOLAGUS CUNICULUS SKIN
     Indication: NEURALGIA

REACTIONS (9)
  - Enteritis [Recovering/Resolving]
  - Vomiting [Recovered/Resolved]
  - Dizziness [Recovered/Resolved]
  - Off label use [Recovered/Resolved]
  - Diarrhoea [Recovering/Resolving]
  - Weight decreased [Unknown]
  - Nausea [Recovered/Resolved]
  - Abdominal discomfort [Recovering/Resolving]
  - Cold sweat [Unknown]

NARRATIVE: CASE EVENT DATE: 20160714
